FAERS Safety Report 14023832 (Version 1)
Quarter: 2017Q3

REPORT INFORMATION
  Report Type: Spontaneous
  Country: US (occurrence: US)
  Receive Date: 20170929
  Receipt Date: 20170929
  Transmission Date: 20171128
  Serious: No
  Sender: FDA-Public Use
  Company Number: US-JUBILANT CADISTA PHARMACEUTICALS-2017JUB00205

PATIENT
  Age: 55 Year
  Sex: Female
  Weight: 61.22 kg

DRUGS (11)
  1. ALBUTEROL INHALER [Suspect]
     Active Substance: ALBUTEROL
     Indication: RESPIRATORY TRACT CONGESTION
     Dosage: UNK
     Dates: start: 20170519
  2. UNSPECIFIED HORMONES [Concomitant]
  3. PREDNISONE. [Suspect]
     Active Substance: PREDNISONE
     Dosage: 10 MG, 1X/DAY
     Route: 048
     Dates: start: 20170525, end: 20170526
  4. BELSOMRA [Concomitant]
     Active Substance: SUVOREXANT
  5. PREDNISONE. [Suspect]
     Active Substance: PREDNISONE
     Indication: COUGH
     Dosage: 20 MG, 1X/DAY
     Route: 048
     Dates: start: 20170523, end: 20170524
  6. ALBUTEROL INHALER [Suspect]
     Active Substance: ALBUTEROL
     Indication: COUGH
  7. TESSALON [Suspect]
     Active Substance: BENZONATATE
     Indication: COUGH
  8. ZYRTEC [Concomitant]
     Active Substance: CETIRIZINE HYDROCHLORIDE
  9. FLONASE [Concomitant]
     Active Substance: FLUTICASONE PROPIONATE
  10. PREDNISONE. [Suspect]
     Active Substance: PREDNISONE
     Indication: RESPIRATORY TRACT CONGESTION
     Dosage: 30 MG, 1X/DAY
     Route: 048
     Dates: start: 20170520, end: 20170522
  11. TESSALON [Suspect]
     Active Substance: BENZONATATE
     Indication: RESPIRATORY TRACT CONGESTION
     Dosage: UNK
     Dates: start: 20170519

REACTIONS (3)
  - Anosmia [Recovering/Resolving]
  - Parosmia [Not Recovered/Not Resolved]
  - Ageusia [Recovering/Resolving]

NARRATIVE: CASE EVENT DATE: 201705
